FAERS Safety Report 10178234 (Version 1)
Quarter: 2014Q2

REPORT INFORMATION
  Report Type: Spontaneous
  Country: IN (occurrence: IN)
  Receive Date: 20140519
  Receipt Date: 20140519
  Transmission Date: 20141212
  Serious: Yes (Hospitalization)
  Sender: FDA-Public Use
  Company Number: IN-BRISTOL-MYERS SQUIBB COMPANY-20777017

PATIENT
  Sex: 0

DRUGS (1)
  1. ERBITUX SOLN FOR INF [Suspect]
     Route: 042

REACTIONS (1)
  - Depressed level of consciousness [Recovered/Resolved]
